FAERS Safety Report 11800495 (Version 3)
Quarter: 2016Q1

REPORT INFORMATION
  Report Type: Spontaneous
  Country: BR (occurrence: BR)
  Receive Date: 20151203
  Receipt Date: 20160120
  Transmission Date: 20160525
  Serious: Yes (Hospitalization)
  Sender: FDA-Public Use
  Company Number: BR-ROCHE-1671232

PATIENT
  Sex: Female

DRUGS (2)
  1. RIVOTRIL [Suspect]
     Active Substance: CLONAZEPAM
     Indication: PRODUCT USED FOR UNKNOWN INDICATION
     Route: 065
  2. RIVOTRIL [Suspect]
     Active Substance: CLONAZEPAM
     Dosage: HALF A TABLET
     Route: 065

REACTIONS (7)
  - Breast mass [Unknown]
  - Somnolence [Unknown]
  - Product physical issue [Unknown]
  - Ankle fracture [Unknown]
  - Fall [Unknown]
  - Incorrect product storage [Unknown]
  - Blood pressure decreased [Unknown]
